FAERS Safety Report 8588088-8 (Version None)
Quarter: 2012Q3

REPORT INFORMATION
  Report Type: 
  Country: None (occurrence: None)
  Receive Date: 20120813
  Receipt Date: 20120808
  Transmission Date: 20120928
  Serious: Yes (Other)
  Sender: FDA-Public Use
  Company Number: US-PFIZER INC-2010034452

PATIENT
  Age: 29 Year
  Sex: Female

DRUGS (19)
  1. ATIVAN [Concomitant]
     Dosage: 2 MG DAILY
     Route: 042
     Dates: start: 20080809
  2. REGLAN [Concomitant]
     Dosage: 10 MG, 4X/DAY
     Route: 042
     Dates: start: 20080810
  3. PHENYTOIN [Concomitant]
     Dosage: 300 MG, 1X/DAY (EVERY BED TIME)
     Route: 048
     Dates: start: 20080807, end: 20080907
  4. METOCLOPRAMIDE [Concomitant]
     Dosage: 10 MG, UNK
     Route: 042
     Dates: start: 20080807, end: 20080907
  5. VICODIN [Concomitant]
     Dosage: 500 MG, 4X/DAY (EVERY SIX HOURS)
     Route: 048
     Dates: start: 20080811, end: 20080818
  6. ZOLOFT [Concomitant]
     Dosage: 100MG ONE TABLET DAILY
     Route: 048
     Dates: start: 20080806
  7. IBUPROFEN [Concomitant]
     Dosage: 800 MG, 1X/DAY
     Route: 048
     Dates: start: 20080806
  8. GEODON [Concomitant]
     Dosage: 80 MG, 4X/DAY
     Dates: start: 20080806
  9. CLONAZEPAM [Concomitant]
     Dosage: UNK
     Dates: start: 20080809
  10. MAGNESIUM [Concomitant]
     Indication: HYPOKALAEMIA
     Dosage: UNK
     Route: 042
     Dates: start: 20080807
  11. FENTANYL [Concomitant]
     Dosage: 100 MG, UNK
     Route: 042
     Dates: start: 20080810
  12. DEPAKOTE [Concomitant]
     Dosage: 500 MG, 2X/DAY
     Route: 048
     Dates: start: 20080812, end: 20080911
  13. DILANTIN [Suspect]
     Dosage: 300MG EVERY BED TIME
     Route: 042
     Dates: start: 20080807, end: 20080818
  14. DILANTIN [Suspect]
     Indication: CONVULSION
     Dosage: ONCE IN MORNING
     Route: 042
     Dates: start: 20080807, end: 20080818
  15. NEXIUM [Concomitant]
     Dosage: 40 MG, UNK
     Route: 048
     Dates: start: 20080810, end: 20080910
  16. TYLENOL [Concomitant]
     Dosage: 650 MG, UNK
     Dates: start: 20080810, end: 20080909
  17. AMBIEN [Concomitant]
     Dosage: 5 MG, UNK
     Route: 048
     Dates: start: 20080811, end: 20080818
  18. DILANTIN [Suspect]
     Dosage: EVERY BED TIME
     Route: 048
     Dates: start: 20080807, end: 20080818
  19. MORPHINE [Concomitant]
     Indication: PAIN
     Dosage: 60 MG, UNK
     Route: 042
     Dates: start: 20080806

REACTIONS (1)
  - STEVENS-JOHNSON SYNDROME [None]
